FAERS Safety Report 9856473 (Version 4)
Quarter: 2014Q1

REPORT INFORMATION
  Report Type: Spontaneous
  Country: JP (occurrence: JP)
  Receive Date: 20140130
  Receipt Date: 20140214
  Transmission Date: 20141002
  Serious: Yes (Life-Threatening, Hospitalization)
  Sender: FDA-Public Use
  Company Number: JP-TEVA-443053USA

PATIENT
  Age: 77 Year
  Sex: Female

DRUGS (9)
  1. BENDAMUSTINE [Suspect]
     Indication: B-CELL SMALL LYMPHOCYTIC LYMPHOMA
     Route: 042
     Dates: start: 20131009, end: 20131010
  2. BENDAMUSTINE [Suspect]
     Indication: CHRONIC LYMPHOCYTIC LEUKAEMIA
  3. BETAMIPRON/PANIPENEM [Suspect]
     Indication: PYREXIA
     Dosage: 1 GRAM DAILY;
     Route: 042
     Dates: start: 20131019, end: 20131024
  4. GRANISETRON [Concomitant]
     Indication: NAUSEA
     Route: 042
     Dates: start: 20131009, end: 20131010
  5. GRANISETRON [Concomitant]
     Indication: VOMITING
  6. DEXAMETHASONE PHOSPHATE [Concomitant]
     Indication: NAUSEA
     Route: 042
     Dates: start: 20131009, end: 20131010
  7. DEXAMETHASONE PHOSPHATE [Concomitant]
     Indication: VOMITING
  8. BETAMETHASONE [Concomitant]
     Indication: NAUSEA
     Route: 048
     Dates: start: 20131011
  9. BETAMETHASONE [Concomitant]
     Indication: VOMITING
     Route: 048
     Dates: start: 20131127

REACTIONS (3)
  - White blood cell count decreased [Recovered/Resolved]
  - Jaundice [Recovered/Resolved]
  - Hepatic function abnormal [Recovered/Resolved]
